FAERS Safety Report 6668192-1 (Version None)
Quarter: 2010Q2

REPORT INFORMATION
  Report Type: 
  Country: None (occurrence: None)
  Receive Date: 20100405
  Receipt Date: 20100405
  Transmission Date: 20101027
  Serious: Yes (Hospitalization)
  Sender: FDA-Public Use
  Company Number: None

PATIENT
  Sex: Male
  Weight: 107.5 kg

DRUGS (4)
  1. CYCLOPHOSPHAMIDE [Suspect]
     Dosage: 2320 MG
  2. CYTARABINE [Suspect]
     Dosage: 870 MG
  3. MERCAPTOPURINE [Suspect]
     Dosage: 1150 MG
  4. METHOTREXATE [Suspect]
     Dosage: 30 MG

REACTIONS (9)
  - ANAEMIA [None]
  - CEREBRAL INFARCTION [None]
  - ENCEPHALITIS [None]
  - FALL [None]
  - HYDROCEPHALUS [None]
  - HYPERLIPIDAEMIA [None]
  - MUSCULAR WEAKNESS [None]
  - THROMBOCYTOPENIA [None]
  - VIRAL INFECTION [None]
